FAERS Safety Report 5671081-2 (Version None)
Quarter: 2008Q1

REPORT INFORMATION
  Report Type: 
  Country: None (occurrence: None)
  Receive Date: 20080318
  Receipt Date: 20080311
  Transmission Date: 20080703
  Serious: Yes (Other)
  Sender: FDA-Public Use
  Company Number: US-ELI_LILLY_AND_COMPANY-US200803002327

PATIENT
  Sex: Female

DRUGS (3)
  1. HUMULIN R [Suspect]
  2. HUMULIN N [Suspect]
  3. ALTACE [Concomitant]

REACTIONS (5)
  - BREAST CANCER [None]
  - EYE HAEMORRHAGE [None]
  - SKIN CANCER [None]
  - UTERINE CANCER [None]
  - VISUAL ACUITY REDUCED [None]
